FAERS Safety Report 6539941-8 (Version None)
Quarter: 2010Q1

REPORT INFORMATION
  Report Type: 
  Country: None (occurrence: None)
  Receive Date: 20100115
  Receipt Date: 20100106
  Transmission Date: 20100710
  Serious: Yes (Other)
  Sender: FDA-Public Use
  Company Number: FR-ELI_LILLY_AND_COMPANY-FR200903000666

PATIENT
  Age: 76 Year
  Sex: Female
  Weight: 45 kg

DRUGS (9)
  1. FORTEO [Suspect]
     Indication: OSTEOPOROSIS
     Dosage: 20 UG, DAILY (1/D)
     Route: 058
     Dates: start: 20080523, end: 20090311
  2. MEDROL [Concomitant]
     Dosage: 6 MG, DAILY (1/D)
     Route: 048
  3. HYDROCORTISONE [Concomitant]
     Dosage: 10 MG, DAILY (1/D)
     Route: 048
  4. ALEPSAL [Concomitant]
     Route: 048
  5. DOLIPRANE [Concomitant]
     Route: 048
  6. STILNOX [Concomitant]
     Dosage: 15 MG, DAILY (1/D)
     Route: 048
  7. DIGOXIN [Concomitant]
  8. CACIT VITAMINE D3 /FRA/ [Concomitant]
     Route: 048
  9. ATENOLOL [Concomitant]
     Dosage: 50 MG, DAILY (1/D)
     Route: 048

REACTIONS (7)
  - C-REACTIVE PROTEIN INCREASED [None]
  - GAMMA-GLUTAMYLTRANSFERASE INCREASED [None]
  - HEPATOCELLULAR INJURY [None]
  - JOINT SWELLING [None]
  - LYMPHOMA [None]
  - OSTEOMYELITIS [None]
  - WEIGHT DECREASED [None]
